FAERS Safety Report 4806741-6 (Version None)
Quarter: 2005Q4

REPORT INFORMATION
  Report Type: 
  Country: None (occurrence: None)
  Receive Date: 20051019
  Receipt Date: 20050707
  Transmission Date: 20060501
  Serious: Yes (Other)
  Sender: FDA-Public Use
  Company Number: EWC051046304

PATIENT
  Age: 50 Year
  Sex: Male
  Weight: 60 kg

DRUGS (6)
  1. GEMCITABINE HYDROCHLORIDE          (GEMCITABINE) [Suspect]
     Indication: NON-SMALL CELL LUNG CANCER
     Dosage: 2000 MG OTHER
     Route: 042
     Dates: start: 20041207, end: 20050204
  2. NAVELBINE [Suspect]
     Indication: NON-SMALL CELL LUNG CANCER
     Dosage: 42 MG OTHER
     Dates: start: 20041207, end: 20050204
  3. ANZEMET (DOLASETRON MESILATE) [Concomitant]
  4. MS CONTIN [Concomitant]
  5. AMITRIPTYLINE HCL [Concomitant]
  6. UCERAX (HYDROXYZINE HYDROCHLORIDE) [Concomitant]

REACTIONS (3)
  - HYPOAESTHESIA [None]
  - NEUTROPENIA [None]
  - STOMATITIS [None]
